FAERS Safety Report 21769618 (Version 1)
Quarter: 2022Q4

REPORT INFORMATION
  Report Type: Spontaneous
  Country: US (occurrence: US)
  Receive Date: 20221223
  Receipt Date: 20221223
  Transmission Date: 20230113
  Serious: No
  Sender: FDA-Public Use
  Company Number: US-BRISTOL-MYERS SQUIBB COMPANY-2022-158057

PATIENT
  Age: 67 Year
  Sex: Female

DRUGS (3)
  1. REVLIMID [Suspect]
     Active Substance: LENALIDOMIDE
     Indication: Plasma cell myeloma
     Dosage: FREQUENCY: 14DAYS ON ,14 DAYS OFF
     Route: 048
     Dates: start: 20220926, end: 20221219
  2. REVLIMID [Suspect]
     Active Substance: LENALIDOMIDE
     Dosage: FREQUENCY: 14DAYS ON ,14 DAYS OFF?EXP NUMBER: 30/SEP/2024
     Route: 048
  3. REVLIMID [Suspect]
     Active Substance: LENALIDOMIDE
     Dosage: EXP NUMBER: 30/SEP/2024
     Route: 048

REACTIONS (2)
  - Platelet count decreased [Unknown]
  - Off label use [Unknown]
